FAERS Safety Report 10011290 (Version 3)
Quarter: 2014Q3

REPORT INFORMATION
  Report Type: Spontaneous
  Country: GB (occurrence: None)
  Receive Date: 20140312
  Receipt Date: 20140723
  Transmission Date: 20150326
  Serious: Yes (Death)
  Sender: FDA-Public Use
  Company Number: 2223571

PATIENT
  Age: 65 Year
  Sex: Male

DRUGS (8)
  1. CYTARABINE. [Suspect]
     Active Substance: CYTARABINE
     Indication: CASTLEMAN^S DISEASE
     Dosage: UNKNOWN:, CYCLICAL, UNKNOWN
  2. DEXAMETHASONE. [Suspect]
     Active Substance: DEXAMETHASONE
     Indication: CASTLEMAN^S DISEASE
     Dosage: UNKNOWN, CYCLICAL, UNKNOWN
  3. VINCRISTINE SULFATE. [Suspect]
     Active Substance: VINCRISTINE SULFATE
     Indication: CASTLEMAN^S DISEASE
     Dosage: UNKNOWN, CYCLICAL, UNKNOWN
  4. CYCLOPHOSPHAMIDE. [Suspect]
     Active Substance: CYCLOPHOSPHAMIDE
     Indication: CASTLEMAN^S DISEASE
     Dosage: UNKNOWN, CYCLICAL, UNKNOWN
  5. DOXORUBICIN HYDROCHLORIDE. [Suspect]
     Active Substance: DOXORUBICIN HYDROCHLORIDE
     Indication: CASTLEMAN^S DISEASE
     Dosage: LIPOSOME INJECTION, CYCLICAL, INTRAVENOUS (NOT OTHERWISE SPECIFIED)?
     Route: 042
  6. CISPLATIN. [Suspect]
     Active Substance: CISPLATIN
     Indication: CASTLEMAN^S DISEASE
     Dosage: UNKNOWN, CYCLICAL, UNKNOWN
  7. RITUXIMAB [Suspect]
     Active Substance: RITUXIMAB
     Indication: CASTLEMAN^S DISEASE
     Dosage: PART OF R-CHOP AND R-DHAP (CYCLICAL)
  8. PREDNISONE. [Suspect]
     Active Substance: PREDNISONE
     Indication: CASTLEMAN^S DISEASE
     Dosage: UNKNOWN, CYCLICAL, UNKNOWN

REACTIONS (3)
  - Disease progression [None]
  - Castleman^s disease [None]
  - Off label use [None]
